FAERS Safety Report 24378456 (Version 4)
Quarter: 2025Q2

REPORT INFORMATION
  Report Type: Report from Study
  Country: CA (occurrence: CA)
  Receive Date: 20240930
  Receipt Date: 20250513
  Transmission Date: 20250716
  Serious: Yes (Other)
  Sender: TAKEDA
  Company Number: CA-TAKEDA-2024TUS095089

PATIENT
  Sex: Female

DRUGS (10)
  1. VEDOLIZUMAB [Suspect]
     Active Substance: VEDOLIZUMAB
     Indication: Colitis ulcerative
  2. VEDOLIZUMAB [Suspect]
     Active Substance: VEDOLIZUMAB
  3. VEDOLIZUMAB [Suspect]
     Active Substance: VEDOLIZUMAB
  4. VEDOLIZUMAB [Suspect]
     Active Substance: VEDOLIZUMAB
  5. METHOTREXATE [Suspect]
     Active Substance: METHOTREXATE
  6. TRAMADOL [Concomitant]
     Active Substance: TRAMADOL
  7. GABAPENTIN [Concomitant]
     Active Substance: GABAPENTIN
  8. LANSOPRAZOLE [Concomitant]
     Active Substance: LANSOPRAZOLE
  9. HYDROXYCHLOROQUINE [Concomitant]
     Active Substance: HYDROXYCHLOROQUINE
  10. TREMFYA [Concomitant]
     Active Substance: GUSELKUMAB

REACTIONS (3)
  - Rheumatoid arthritis [Recovering/Resolving]
  - Arthralgia [Unknown]
  - Off label use [Recovering/Resolving]
